FAERS Safety Report 9101679 (Version 1)
Quarter: 2013Q1

REPORT INFORMATION
  Report Type: Spontaneous
  Country: BR (occurrence: BR)
  Receive Date: 20130218
  Receipt Date: 20130218
  Transmission Date: 20140127
  Serious: Yes (Hospitalization)
  Sender: FDA-Public Use
  Company Number: BR-ASTRAZENECA-2013SE10005

PATIENT
  Age: 848 Month
  Sex: Female
  Weight: 62 kg

DRUGS (10)
  1. SELOZOK [Suspect]
     Route: 048
     Dates: start: 2008
  2. CRESTOR [Suspect]
     Indication: BLOOD CHOLESTEROL INCREASED
     Route: 048
     Dates: start: 2008, end: 20130131
  3. CRESTOR [Suspect]
     Indication: BLOOD CHOLESTEROL INCREASED
     Route: 048
  4. MONOCORDIL [Concomitant]
     Route: 048
     Dates: start: 2008
  5. ACETYLSALICYLIC ACID [Concomitant]
     Route: 048
     Dates: start: 2008
  6. SULPAN [Concomitant]
     Route: 048
     Dates: start: 2008
  7. SERTRALINE HYDROCHLORIDE [Concomitant]
     Route: 048
     Dates: start: 2008
  8. ARADOIS [Concomitant]
     Route: 048
     Dates: start: 2008
  9. GLIMEPIRIDE [Concomitant]
     Route: 048
     Dates: start: 2008
  10. GALVUS [Concomitant]
     Route: 048
     Dates: start: 2008

REACTIONS (1)
  - Venous occlusion [Recovered/Resolved]
